FAERS Safety Report 6695832-3 (Version None)
Quarter: 2010Q2

REPORT INFORMATION
  Report Type: 
  Country: None (occurrence: None)
  Receive Date: 20100401
  Receipt Date: 20090724
  Transmission Date: 20101027
  Serious: Yes (Other)
  Sender: FDA-Public Use
  Company Number: 203500USA

PATIENT
  Age: 7 Year
  Sex: Male

DRUGS (1)
  1. ETOPOSIDE [Suspect]

REACTIONS (3)
  - ASPERGILLOSIS [None]
  - BONE MARROW FAILURE [None]
  - PANCYTOPENIA [None]
